FAERS Safety Report 8264725-2 (Version None)
Quarter: 2012Q2

REPORT INFORMATION
  Report Type: 
  Country: None (occurrence: None)
  Receive Date: 20120406
  Receipt Date: 20120403
  Transmission Date: 20120825
  Serious: Yes (Death, Other)
  Sender: FDA-Public Use
  Company Number: US-BRISTOL-MYERS SQUIBB COMPANY-16369175

PATIENT
  Age: 65 Year
  Sex: Female

DRUGS (17)
  1. FOLIC ACID [Concomitant]
  2. OMEPRAZOLE [Concomitant]
  3. CRESTOR [Concomitant]
  4. XGEVA [Concomitant]
     Dosage: PROLIA
  5. NITROGLYCERIN [Concomitant]
  6. SPIRONOLACTONE [Concomitant]
  7. TRAMADOL HCL [Concomitant]
  8. ASPIRIN [Concomitant]
  9. VITAMIN D [Concomitant]
     Dates: start: 20111201
  10. NITROLINGUAL [Concomitant]
     Dosage: IF NEEDED. NITROSUBLINGUAL
  11. CALCIUM + VITAMIN D [Concomitant]
  12. ISOSORBIDE DINITRATE [Concomitant]
  13. MAGNESIUM HYDROXIDE TAB [Concomitant]
  14. ORENCIA [Suspect]
     Indication: RHEUMATOID ARTHRITIS
     Route: 042
     Dates: start: 20120118
  15. ZETIA [Concomitant]
  16. FUROSEMIDE [Concomitant]
  17. COLCHICINE [Concomitant]

REACTIONS (2)
  - MYOCARDIAL INFARCTION [None]
  - ROAD TRAFFIC ACCIDENT [None]
